FAERS Safety Report 7703998-9 (Version None)
Quarter: 2011Q3

REPORT INFORMATION
  Report Type: 
  Country: None (occurrence: None)
  Receive Date: 20110823
  Receipt Date: 20110819
  Transmission Date: 20111222
  Serious: No
  Sender: FDA-Public Use
  Company Number: US-TEVA-297486USA

PATIENT
  Sex: Female
  Weight: 66.738 kg

DRUGS (2)
  1. PLAN B ONE-STEP [Suspect]
     Indication: POST COITAL CONTRACEPTION
     Dosage: 1.5 MILLIGRAM;
     Route: 048
     Dates: start: 20110811, end: 20110811
  2. ZOLOFT [Concomitant]
     Indication: DEPRESSION
     Dosage: 75 MILLIGRAM;

REACTIONS (3)
  - ABDOMINAL DISTENSION [None]
  - MENSTRUATION IRREGULAR [None]
  - BREAST TENDERNESS [None]
